FAERS Safety Report 7029384-5 (Version None)
Quarter: 2010Q3

REPORT INFORMATION
  Report Type: 
  Country: None (occurrence: None)
  Receive Date: 20100924
  Receipt Date: 20100608
  Transmission Date: 20110219
  Serious: Yes (Hospitalization)
  Sender: FDA-Public Use
  Company Number: WAES 1006USA01295

PATIENT
  Age: 65 Year
  Sex: Female

DRUGS (2)
  1. VYTORIN [Suspect]
     Indication: HYPERCHOLESTEROLAEMIA
     Dosage: 10/20 MG/DAILY/PO
     Route: 048
  2. LISINOPRIL [Concomitant]

REACTIONS (1)
  - SWELLING FACE [None]
